FAERS Safety Report 9175037 (Version 1)
Quarter: 2013Q1

REPORT INFORMATION
  Report Type: Report from Study
  Country: KR (occurrence: KR)
  Receive Date: 20130320
  Receipt Date: 20130320
  Transmission Date: 20140127
  Serious: Yes (Hospitalization)
  Sender: FDA-Public Use
  Company Number: KR-AMGEN-KORCT2013018573

PATIENT
  Age: 76 Year
  Sex: Male

DRUGS (11)
  1. DARBEPOETIN ALFA [Suspect]
     Indication: NEPHROGENIC ANAEMIA
     Dosage: 120 MUG, QD
     Route: 058
     Dates: start: 20120619
  2. DIOVAN [Concomitant]
     Dosage: 160 MG, UNK
     Route: 048
     Dates: start: 20120515
  3. DILATREND [Concomitant]
     Dosage: 25 MG, UNK
     Route: 048
     Dates: start: 20120515
  4. LIPITOR [Concomitant]
     Dosage: 10 MG, UNK
     Route: 048
     Dates: start: 20120515
  5. LASIX [Concomitant]
     Dosage: 40 MG, UNK
     Route: 048
     Dates: start: 20120515
  6. BONKY [Concomitant]
     Dosage: 0.25 MG, UNK
     Route: 048
     Dates: start: 20120515
  7. ASPIRIN PROTECT [Concomitant]
     Dosage: 100 MG, UNK
     Route: 048
     Dates: start: 20120515
  8. CALCIUM CARBONATE [Concomitant]
     Dosage: 2000 MG, UNK
     Route: 048
     Dates: start: 20120515
  9. HARNAL [Concomitant]
     Dosage: 0.2 MG, UNK
     Route: 048
     Dates: start: 20120515
  10. ENAFON [Concomitant]
     Dosage: 10 MG, UNK
     Route: 048
     Dates: start: 20120515
  11. STILNOX CR [Concomitant]
     Dosage: 6.25 MG, UNK
     Route: 048
     Dates: start: 20120515

REACTIONS (2)
  - Electrocardiogram ST-T segment depression [Unknown]
  - Pulmonary congestion [Unknown]
